FAERS Safety Report 24093011 (Version 4)
Quarter: 2024Q4

REPORT INFORMATION
  Report Type: Spontaneous
  Country: US (occurrence: US)
  Receive Date: 20240715
  Receipt Date: 20241226
  Transmission Date: 20250115
  Serious: Yes (Other)
  Sender: PFIZER
  Company Number: US-PFIZER INC-PV202400081096

PATIENT
  Age: 64 Year
  Sex: Female

DRUGS (4)
  1. TUKYSA [Suspect]
     Active Substance: TUCATINIB
     Indication: Breast cancer female
     Dosage: 150MG TAKE 1 TABLET TWICE DAILY
  2. TUKYSA [Suspect]
     Active Substance: TUCATINIB
     Indication: Breast cancer metastatic
     Dosage: 150MG TAKE 1 TABLET DAILY
  3. TUKYSA [Suspect]
     Active Substance: TUCATINIB
     Indication: Crohn^s disease
     Dosage: 300MGS ORALLY 2X A DAY
     Route: 048
  4. TUKYSA [Suspect]
     Active Substance: TUCATINIB
     Indication: HER2 positive breast cancer

REACTIONS (4)
  - Cerebral disorder [Unknown]
  - Hypersensitivity [Unknown]
  - Off label use [Unknown]
  - Off label use [Unknown]
